FAERS Safety Report 7953041-1 (Version None)
Quarter: 2011Q4

REPORT INFORMATION
  Report Type: 
  Country: None (occurrence: None)
  Receive Date: 20111201
  Receipt Date: 20111122
  Transmission Date: 20120403
  Serious: Yes (Hospitalization, Disabling)
  Sender: FDA-Public Use
  Company Number: BR-ASTRAZENECA-2011SE12206

PATIENT
  Age: 62 Year
  Sex: Female
  Weight: 72 kg

DRUGS (7)
  1. CICLOBENZAPRINA [Concomitant]
     Route: 048
     Dates: start: 20040101
  2. HYDROCHLOROTHIAZIDE [Concomitant]
     Indication: HYPERTENSION
     Route: 048
  3. MIOSAN [Concomitant]
     Indication: FIBROMYALGIA
     Route: 048
     Dates: start: 20040101
  4. UNKNOWN [Concomitant]
     Indication: DEPRESSION
     Route: 048
     Dates: start: 20040101
  5. VEROTINA [Concomitant]
     Indication: DEPRESSION
     Route: 048
     Dates: start: 20040101
  6. NEXIUM [Suspect]
     Indication: GASTRIC ULCER
     Route: 048
     Dates: start: 20050101
  7. CAPTOPRIL [Concomitant]
     Indication: HYPERTENSION
     Route: 048
     Dates: end: 20090101

REACTIONS (4)
  - VAGINAL HAEMORRHAGE [None]
  - FALL [None]
  - PUBIS FRACTURE [None]
  - BLOOD PRESSURE INADEQUATELY CONTROLLED [None]
